FAERS Safety Report 20147993 (Version 4)
Quarter: 2021Q4

REPORT INFORMATION
  Report Type: Spontaneous
  Country: CN (occurrence: CN)
  Receive Date: 20211204
  Receipt Date: 20211216
  Transmission Date: 20220303
  Serious: Yes (Death, Life-Threatening, Hospitalization, Other)
  Sender: FDA-Public Use
  Company Number: CN-Blueprint Medicines Corporation-SO-CN-2021-002330

PATIENT
  Age: 76 Year
  Sex: Female

DRUGS (2)
  1. GAVRETO [Suspect]
     Active Substance: PRALSETINIB
     Indication: Non-small cell lung cancer
     Route: 048
     Dates: start: 20210910, end: 20211028
  2. GAVRETO [Suspect]
     Active Substance: PRALSETINIB
     Route: 048
     Dates: start: 20211109, end: 20211112

REACTIONS (19)
  - Death [Fatal]
  - Gastrointestinal haemorrhage [Unknown]
  - Bronchial haemorrhage [Unknown]
  - Intestinal haemorrhage [Unknown]
  - Hydrothorax [Unknown]
  - Melaena [Unknown]
  - Haemoptysis [Unknown]
  - Intussusception [Unknown]
  - Haematochezia [Unknown]
  - Pneumonia [Unknown]
  - Immunodeficiency [Unknown]
  - Suspected product quality issue [Unknown]
  - Dry mouth [Unknown]
  - Haemoglobin decreased [Unknown]
  - Asthenia [Unknown]
  - Hypertension [Unknown]
  - White blood cell count decreased [Unknown]
  - Lymphocyte count decreased [Unknown]
  - Infection [Unknown]

NARRATIVE: CASE EVENT DATE: 20211024
